FAERS Safety Report 7475551-6 (Version None)
Quarter: 2011Q2

REPORT INFORMATION
  Report Type: 
  Country: None (occurrence: None)
  Receive Date: 20110512
  Receipt Date: 20110504
  Transmission Date: 20111010
  Serious: Yes (Disabling, Other)
  Sender: FDA-Public Use
  Company Number: PHHY2011AU20373

PATIENT
  Sex: Male

DRUGS (6)
  1. ASPIRIN [Concomitant]
     Dosage: UNK
  2. STALEVO 100 [Suspect]
     Indication: DYSKINESIA
     Dosage: 900-1050 MG, DAILY
     Route: 048
     Dates: start: 20090317, end: 20101125
  3. TRITACE [Concomitant]
     Dosage: 10 MG, UNK
  4. VALIUM [Concomitant]
     Dosage: UNK
  5. ELDEPRYL [Concomitant]
     Dosage: 5 MG, UNK
     Route: 048
  6. LIPITOR [Concomitant]
     Dosage: 10 MG, UNK
     Route: 048

REACTIONS (3)
  - SOMNOLENCE [None]
  - NERVOUS SYSTEM DISORDER [None]
  - QUALITY OF LIFE DECREASED [None]
